FAERS Safety Report 23805649 (Version 1)
Quarter: 2024Q2

REPORT INFORMATION
  Report Type: Spontaneous
  Country: CN (occurrence: CN)
  Receive Date: 20240502
  Receipt Date: 20240502
  Transmission Date: 20240716
  Serious: No
  Sender: FDA-Public Use
  Company Number: CN-ALKEM LABORATORIES LIMITED-CN-ALKEM-2023-11964

PATIENT
  Age: 12 Year

DRUGS (3)
  1. LIDOCAINE [Suspect]
     Active Substance: LIDOCAINE
     Indication: Complex regional pain syndrome
     Dosage: 15 MILLILITER
     Route: 065
  2. LIDOCAINE [Suspect]
     Active Substance: LIDOCAINE
     Dosage: 250 MILLIGRAM (INFUSION)
     Route: 042
  3. BUPIVACAINE [Suspect]
     Active Substance: BUPIVACAINE
     Indication: Complex regional pain syndrome
     Dosage: 20 MILLILITER
     Route: 065

REACTIONS (2)
  - Dysarthria [Unknown]
  - Paraesthesia oral [Unknown]
